FAERS Safety Report 24584562 (Version 1)
Quarter: 2024Q4

REPORT INFORMATION
  Report Type: Spontaneous
  Country: US (occurrence: None)
  Receive Date: 20241106
  Receipt Date: 20241106
  Transmission Date: 20250114
  Serious: No
  Sender: Public
  Company Number: None

PATIENT
  Age: 73 Year
  Sex: Female
  Weight: 54.43 kg

DRUGS (1)
  1. TERIPARATIDE [Suspect]
     Active Substance: TERIPARATIDE
     Indication: Osteoporosis
     Dosage: OTHER FREQUENCY : DAILYASDIRECTEDINTOTHIGHORABDOMINAL WALL;?
     Route: 058
     Dates: start: 202405

REACTIONS (1)
  - Cardiac disorder [None]
